FAERS Safety Report 25878260 (Version 1)
Quarter: 2025Q4

REPORT INFORMATION
  Report Type: Spontaneous
  Country: US (occurrence: US)
  Receive Date: 20251003
  Receipt Date: 20251003
  Transmission Date: 20260119
  Serious: Yes (Other)
  Sender: RANBAXY
  Company Number: US-SUN PHARMACEUTICAL INDUSTRIES LTD-2025R1-529819

PATIENT
  Age: 65 Year
  Sex: Female

DRUGS (2)
  1. HYDROCHLOROTHIAZIDE\LOSARTAN [Interacting]
     Active Substance: HYDROCHLOROTHIAZIDE\LOSARTAN
     Indication: Hypertension
     Dosage: 100/25 MG DAILY
     Route: 065
  2. TIRZEPATIDE [Interacting]
     Active Substance: TIRZEPATIDE
     Indication: Product used for unknown indication
     Dosage: 2.5 MILLIGRAM
     Route: 058

REACTIONS (3)
  - Drug interaction [Unknown]
  - Hypercalcaemia [Recovering/Resolving]
  - Mental status changes [Unknown]
